FAERS Safety Report 11045204 (Version 1)
Quarter: 2015Q2

REPORT INFORMATION
  Report Type: Report from Study
  Country: PK (occurrence: PK)
  Receive Date: 20150417
  Receipt Date: 20150417
  Transmission Date: 20150821
  Serious: Yes (Hospitalization, Other)
  Sender: FDA-Public Use
  Company Number: PK-SA-2015SA046832

PATIENT
  Age: 55 Year
  Sex: Male
  Weight: 72 kg

DRUGS (4)
  1. LANTUS SOLOSTAR [Suspect]
     Active Substance: INSULIN GLARGINE
     Indication: TYPE 2 DIABETES MELLITUS
     Dosage: FREQUENCY: IN THE MORNING
     Route: 058
     Dates: start: 2013
  2. LANTUS SOLOSTAR [Suspect]
     Active Substance: INSULIN GLARGINE
     Indication: TYPE 2 DIABETES MELLITUS
     Route: 058
  3. SOLOSTAR [Concomitant]
     Active Substance: DEVICE
  4. INSULIN, REGULAR [Concomitant]
     Active Substance: INSULIN NOS
     Indication: TYPE 2 DIABETES MELLITUS
     Route: 058
     Dates: start: 201501

REACTIONS (4)
  - Hypoglycaemia [Recovered/Resolved]
  - Renal function test abnormal [Unknown]
  - Coronary artery disease [Recovered/Resolved]
  - Myocardial infarction [Recovered/Resolved]

NARRATIVE: CASE EVENT DATE: 201501
